FAERS Safety Report 5204938-7 (Version None)
Quarter: 2007Q1

REPORT INFORMATION
  Report Type: 
  Country: None (occurrence: None)
  Receive Date: 20070110
  Receipt Date: 20060908
  Transmission Date: 20070707
  Serious: No
  Sender: FDA-Public Use
  Company Number: US-BRISTOL-MYERS SQUIBB COMPANY-13502786

PATIENT
  Age: 9 Year
  Sex: Female
  Weight: 58 kg

DRUGS (3)
  1. ABILIFY [Suspect]
     Indication: AFFECTIVE DISORDER
     Dosage: ONE WEEK LATER DOSE INCREASED TO 5 MG ONCE DAILY, ONE WEEK LATER DOSE INCR TO 10 MG ONCE DAILY
     Route: 048
  2. RISPERDAL [Concomitant]
  3. CLONIDINE [Concomitant]

REACTIONS (2)
  - DYSARTHRIA [None]
  - NASOPHARYNGITIS [None]
